FAERS Safety Report 11455559 (Version 1)
Quarter: 2015Q3

REPORT INFORMATION
  Report Type: Spontaneous
  Country: US (occurrence: US)
  Receive Date: 20150903
  Receipt Date: 20150903
  Transmission Date: 20151125
  Serious: No
  Sender: FDA-Public Use
  Company Number: US-BEH-2014043346

PATIENT
  Age: 33 Year
  Sex: Female
  Weight: 56 kg

DRUGS (18)
  1. AMNESTEEM [Concomitant]
     Active Substance: ISOTRETINOIN
  2. ALBUTEROL. [Concomitant]
     Active Substance: ALBUTEROL
  3. ZEMAIRA [Suspect]
     Active Substance: .ALPHA.1-PROTEINASE INHIBITOR HUMAN
     Route: 042
  4. HEPARIN [Concomitant]
     Active Substance: HEPARIN SODIUM
  5. PREDNISONE. [Concomitant]
     Active Substance: PREDNISONE
  6. TYLENOL [Concomitant]
     Active Substance: ACETAMINOPHEN
  7. EPIPEN [Concomitant]
     Active Substance: EPINEPHRINE
  8. ZENATANE [Concomitant]
     Active Substance: ISOTRETINOIN
  9. ALLEGRA-D [Concomitant]
     Active Substance: FEXOFENADINE\PSEUDOEPHEDRINE
  10. LEVAQUIN [Concomitant]
     Active Substance: LEVOFLOXACIN
  11. SODIUM CHLORIDE. [Concomitant]
     Active Substance: SODIUM CHLORIDE
  12. ZEMAIRA [Suspect]
     Active Substance: .ALPHA.1-PROTEINASE INHIBITOR HUMAN
     Indication: ALPHA-1 ANTI-TRYPSIN DEFICIENCY
     Route: 042
     Dates: start: 20140609
  13. AMOXICILLIN. [Concomitant]
     Active Substance: AMOXICILLIN
  14. LMX [Concomitant]
     Active Substance: LIDOCAINE
  15. ONE A DAY [Concomitant]
  16. PREVACID [Concomitant]
     Active Substance: LANSOPRAZOLE
  17. LIDOCAINE/PRILOCAINE [Concomitant]
  18. CIPRO [Concomitant]
     Active Substance: CIPROFLOXACIN HYDROCHLORIDE

REACTIONS (2)
  - Pruritus [Unknown]
  - Urticaria [Recovered/Resolved]

NARRATIVE: CASE EVENT DATE: 20140609
